FAERS Safety Report 21190770 (Version 1)
Quarter: 2022Q3

REPORT INFORMATION
  Report Type: Spontaneous
  Country: DE (occurrence: DE)
  Receive Date: 20220809
  Receipt Date: 20220809
  Transmission Date: 20221026
  Serious: Yes (Hospitalization)
  Sender: FDA-Public Use
  Company Number: DE-MYLANLABS-2022M1084669

PATIENT
  Age: 90 Year
  Sex: Female

DRUGS (4)
  1. SIMVASTATIN [Suspect]
     Active Substance: SIMVASTATIN
     Indication: Product used for unknown indication
     Dosage: UNK
     Route: 065
  2. IMIQUIMOD [Suspect]
     Active Substance: IMIQUIMOD
     Indication: Neuroendocrine carcinoma of the skin
     Dosage: UNK, 3XW
     Route: 061
  3. INTERFERON ALFA-2A [Suspect]
     Active Substance: INTERFERON ALFA-2A
     Indication: Neuroendocrine carcinoma of the skin
     Dosage: 1-2*106 IU, QW
     Route: 026
  4. PEGINTERFERON ALFA-2B [Concomitant]
     Active Substance: PEGINTERFERON ALFA-2B
     Indication: Neuroendocrine carcinoma of the skin
     Dosage: 30 MICROGRAM, QW
     Route: 058

REACTIONS (3)
  - Neuroendocrine carcinoma of the skin [Recovering/Resolving]
  - Off label use [Recovering/Resolving]
  - Eczema [Unknown]
